FAERS Safety Report 6614362-8 (Version None)
Quarter: 2010Q1

REPORT INFORMATION
  Report Type: 
  Country: None (occurrence: None)
  Receive Date: 20100304
  Receipt Date: 20100219
  Transmission Date: 20100710
  Serious: Yes (Hospitalization)
  Sender: FDA-Public Use
  Company Number: US-CELGENEUS-163-20785-09101402

PATIENT
  Sex: Male

DRUGS (9)
  1. THALOMID [Suspect]
     Indication: MULTIPLE MYELOMA
     Route: 048
     Dates: start: 20091001
  2. THALOMID [Suspect]
     Route: 048
     Dates: start: 20090901, end: 20091001
  3. PREDNISONE [Suspect]
     Indication: MULTIPLE MYELOMA
     Route: 048
  4. MELPHALAN [Concomitant]
     Indication: MULTIPLE MYELOMA
     Route: 048
  5. AMLODIPINE [Concomitant]
     Indication: DRUG USE FOR UNKNOWN INDICATION
     Route: 065
  6. ASPIRIN [Concomitant]
     Indication: DRUG USE FOR UNKNOWN INDICATION
     Route: 065
  7. NORCO [Concomitant]
     Indication: PAIN
     Dosage: 10/325
     Route: 065
  8. PHENYTOIN [Concomitant]
     Indication: DRUG USE FOR UNKNOWN INDICATION
     Route: 048
  9. PROTONIX [Concomitant]
     Indication: DRUG USE FOR UNKNOWN INDICATION
     Route: 065

REACTIONS (3)
  - DIABETIC HYPERGLYCAEMIC COMA [None]
  - HYPERGLYCAEMIA [None]
  - NEUTROPENIA [None]
